FAERS Safety Report 8059320-4 (Version None)
Quarter: 2012Q1

REPORT INFORMATION
  Report Type: 
  Country: None (occurrence: None)
  Receive Date: 20120113
  Receipt Date: 20120104
  Transmission Date: 20120608
  Serious: Yes (Hospitalization)
  Sender: FDA-Public Use
  Company Number: DKLU1075795

PATIENT
  Age: 7 Month
  Sex: Male

DRUGS (2)
  1. SABRIL [Suspect]
     Indication: INFANTILE SPASMS
     Dosage: 1000 MG MILLIGRAM(S), 2 IN 1 D, ORAL
     Route: 048
     Dates: start: 20111221
  2. ACTH [Suspect]
     Indication: INFANTILE SPASMS

REACTIONS (1)
  - GASTROOESOPHAGEAL REFLUX DISEASE [None]
